FAERS Safety Report 5812048-0 (Version None)
Quarter: 2008Q3

REPORT INFORMATION
  Report Type: 
  Country: None (occurrence: None)
  Receive Date: 20080716
  Receipt Date: 20080714
  Transmission Date: 20090109
  Serious: Yes (Life-Threatening, Hospitalization, Other)
  Sender: FDA-Public Use
  Company Number: PHHY2008NL13840

PATIENT

DRUGS (4)
  1. DICLOFENAC [Suspect]
     Indication: BACK PAIN
     Dosage: 75 MG, QD
     Dates: start: 20070101, end: 20080610
  2. DICLOFENAC [Suspect]
     Dosage: 75 MG AS PER NEED
  3. DIAZEPAM [Concomitant]
     Dosage: 5 MG, QD
     Route: 048
     Dates: start: 20070101
  4. DIAZEPAM [Concomitant]
     Dosage: 5 MG PER TIME
     Route: 048

REACTIONS (5)
  - ANGIOEDEMA [None]
  - DEPRESSED LEVEL OF CONSCIOUSNESS [None]
  - DYSPNOEA [None]
  - ERYTHEMA [None]
  - PRURITUS [None]
